FAERS Safety Report 18675316 (Version 1)
Quarter: 2020Q4

REPORT INFORMATION
  Report Type: Spontaneous
  Country: US (occurrence: US)
  Receive Date: 20201229
  Receipt Date: 20201229
  Transmission Date: 20210114
  Serious: Yes (Death, Other)
  Sender: FDA-Public Use
  Company Number: US-AMGEN-USASP2020208796

PATIENT

DRUGS (2)
  1. NEUPOGEN [Suspect]
     Active Substance: FILGRASTIM
     Indication: AMYOTROPHIC LATERAL SCLEROSIS
     Dosage: 50 MICROGRAM/KILOGRAM, QMO (5 MCG/KG, BID FOR 5 CONSECUTIVE DAYS MONTHLY)
     Route: 058
  2. RILUZOLE. [Concomitant]
     Active Substance: RILUZOLE
     Indication: AMYOTROPHIC LATERAL SCLEROSIS

REACTIONS (16)
  - Fatigue [Unknown]
  - Oropharyngeal pain [Unknown]
  - Abdominal discomfort [Unknown]
  - Arthralgia [Unknown]
  - Alpha tumour necrosis factor increased [Unknown]
  - Injection site pain [Unknown]
  - Nausea [Unknown]
  - Respiratory failure [Fatal]
  - Disease progression [Unknown]
  - Leukocytosis [Recovered/Resolved]
  - Headache [Unknown]
  - Musculoskeletal stiffness [Unknown]
  - Myalgia [Unknown]
  - Malaise [Unknown]
  - Tachycardia [Unknown]
  - Hypertension [Recovered/Resolved]
